FAERS Safety Report 15467171 (Version 1)
Quarter: 2018Q4

REPORT INFORMATION
  Report Type: Spontaneous
  Country: DK (occurrence: DK)
  Receive Date: 20181005
  Receipt Date: 20181005
  Transmission Date: 20190204
  Serious: Yes (Hospitalization)
  Sender: FDA-Public Use
  Company Number: DK-TEVA-2018-DK-961164

PATIENT
  Age: 59 Year
  Sex: Female

DRUGS (1)
  1. PREDNISOLONE. [Suspect]
     Active Substance: PREDNISOLONE
     Indication: CHRONIC OBSTRUCTIVE PULMONARY DISEASE
     Dosage: 37.5 MILLIGRAM DAILY; STYRKE: 25 MG
     Route: 048
     Dates: start: 2003

REACTIONS (3)
  - Adrenal insufficiency [Unknown]
  - Iatrogenic injury [Unknown]
  - Cushingoid [Unknown]

NARRATIVE: CASE EVENT DATE: 2016
